FAERS Safety Report 20440331 (Version 1)
Quarter: 2022Q1

REPORT INFORMATION
  Report Type: Spontaneous
  Country: US (occurrence: None)
  Receive Date: 20220207
  Receipt Date: 20220207
  Transmission Date: 20220423
  Serious: Yes (Hospitalization)
  Sender: FDA-Public Use
  Company Number: None

PATIENT
  Age: 57 Year
  Sex: Female

DRUGS (1)
  1. AVONEX [Suspect]
     Active Substance: INTERFERON BETA-1A
     Indication: Multiple sclerosis
     Dosage: OTHER QUANTITY : 30MCG/0.5ML;?FREQUENCY : WEEKLY;?
     Route: 030
     Dates: start: 20120928

REACTIONS (4)
  - Urinary tract disorder [None]
  - Infection [None]
  - Pain in extremity [None]
  - Skin ulcer [None]

NARRATIVE: CASE EVENT DATE: 20220130
